FAERS Safety Report 7653854-X (Version None)
Quarter: 2011Q3

REPORT INFORMATION
  Report Type: 
  Country: None (occurrence: None)
  Receive Date: 20110803
  Receipt Date: 20110722
  Transmission Date: 20111222
  Serious: Yes (Hospitalization)
  Sender: FDA-Public Use
  Company Number: FR-BRISTOL-MYERS SQUIBB COMPANY-15923733

PATIENT
  Age: 77 Year
  Sex: Male

DRUGS (1)
  1. IRBESARTAN AND HYDROCHLOROTHIAZIDE [Suspect]
     Indication: HYPERTENSION
     Route: 048
     Dates: end: 20100209

REACTIONS (4)
  - HYPERHIDROSIS [None]
  - HYPONATRAEMIA [None]
  - GASTROINTESTINAL DISORDER [None]
  - DIZZINESS [None]
